FAERS Safety Report 4591172-7 (Version None)
Quarter: 2005Q1

REPORT INFORMATION
  Report Type: 
  Country: None (occurrence: None)
  Receive Date: 20050218
  Receipt Date: 20050205
  Transmission Date: 20050727
  Serious: Yes (Other)
  Sender: FDA-Public Use
  Company Number: HU-2005-001715

PATIENT
  Age: 34 Year
  Sex: Female
  Weight: 63 kg

DRUGS (1)
  1. YADINE (DROSPIRENONE, ETHINYLESTRADIOL) FILM TABLET [Suspect]
     Indication: ORAL CONTRACEPTION
     Dosage: 1 TAB(S)1XDAY ORAL
     Route: 048
     Dates: start: 20030801, end: 20041201

REACTIONS (4)
  - DELUSION [None]
  - HALLUCINATION, OLFACTORY [None]
  - MAJOR DEPRESSION [None]
  - SUICIDAL IDEATION [None]
